FAERS Safety Report 17125690 (Version 1)
Quarter: 2019Q4

REPORT INFORMATION
  Report Type: Spontaneous
  Country: CN (occurrence: CN)
  Receive Date: 20191208
  Receipt Date: 20191208
  Transmission Date: 20200122
  Serious: Yes (Death, Other)
  Sender: FDA-Public Use
  Company Number: NVSC2019CN061628

PATIENT
  Age: 50 Year
  Sex: Male

DRUGS (1)
  1. PAZOPANIB [Suspect]
     Active Substance: PAZOPANIB
     Indication: RENAL CELL CARCINOMA
     Dosage: 800 MG
     Route: 048
     Dates: start: 201707, end: 201804

REACTIONS (3)
  - Pneumothorax [Recovered/Resolved]
  - Pneumonia [Fatal]
  - Pneumothorax [Fatal]

NARRATIVE: CASE EVENT DATE: 201804
